FAERS Safety Report 8899078 (Version 8)
Quarter: 2015Q2

REPORT INFORMATION
  Report Type: Spontaneous
  Country: US (occurrence: US)
  Receive Date: 20121109
  Receipt Date: 20150629
  Transmission Date: 20150821
  Serious: Yes (Hospitalization, Other)
  Sender: FDA-Public Use
  Company Number: US-009507513-1211USA003842

PATIENT
  Sex: Male

DRUGS (2)
  1. PROPECIA [Suspect]
     Active Substance: FINASTERIDE
     Indication: ALOPECIA
     Dosage: 1 MG, QD
     Route: 048
     Dates: start: 20060407, end: 20111228
  2. FLOMAX [Concomitant]
     Active Substance: TAMSULOSIN HYDROCHLORIDE
     Indication: BENIGN PROSTATIC HYPERPLASIA
     Dosage: 0.4 MG, UNK

REACTIONS (45)
  - Blood testosterone decreased [Unknown]
  - Asthma [Unknown]
  - Chronic obstructive pulmonary disease [Unknown]
  - Pneumonia [Unknown]
  - Testicular pain [Unknown]
  - Rotator cuff syndrome [Unknown]
  - Fluid retention [Unknown]
  - Herpes virus infection [Unknown]
  - Emphysema [Unknown]
  - Urethritis noninfective [Unknown]
  - Anxiety [Unknown]
  - Hypogonadism [Unknown]
  - Hernia [Unknown]
  - Thyroid disorder [Unknown]
  - Asthenia [Recovered/Resolved]
  - Depression [Unknown]
  - Libido decreased [Unknown]
  - Erectile dysfunction [Unknown]
  - Transurethral prostatectomy [Unknown]
  - Spinal laminectomy [Unknown]
  - Cognitive disorder [Not Recovered/Not Resolved]
  - Obsessive-compulsive disorder [Unknown]
  - Mood altered [Unknown]
  - Testicular failure [Unknown]
  - Orthostatic intolerance [Recovered/Resolved]
  - Sexual dysfunction [Not Recovered/Not Resolved]
  - Blood cholesterol [Unknown]
  - Myalgia [Unknown]
  - Pain [Unknown]
  - Chest pain [Unknown]
  - Knee operation [Unknown]
  - Pollakiuria [Unknown]
  - Syncope [Unknown]
  - Contusion [Unknown]
  - Abdominal pain [Unknown]
  - Testicular pain [Unknown]
  - Dizziness [Unknown]
  - Back pain [Unknown]
  - Renal cyst [Unknown]
  - Bone pain [Unknown]
  - Hypertension [Unknown]
  - Fatigue [Unknown]
  - Nocturia [Unknown]
  - Micturition urgency [Unknown]
  - Arteriosclerosis [Unknown]

NARRATIVE: CASE EVENT DATE: 2006
